FAERS Safety Report 10065113 (Version 1)
Quarter: 2014Q2

REPORT INFORMATION
  Report Type: Spontaneous
  Country: US (occurrence: US)
  Receive Date: 20140408
  Receipt Date: 20140408
  Transmission Date: 20141212
  Serious: Yes (Hospitalization, Other)
  Sender: FDA-Public Use
  Company Number: US-LUNDBECK-DKLU1098802

PATIENT
  Age: 20 Year
  Sex: Male

DRUGS (2)
  1. SABRIL     (TABLET) [Suspect]
     Indication: GENERALISED TONIC-CLONIC SEIZURE
     Route: 048
     Dates: start: 20100112
  2. SABRIL     (TABLET) [Suspect]
     Route: 048
     Dates: start: 20100112

REACTIONS (2)
  - Foreign body [Unknown]
  - Convulsion [Unknown]
